FAERS Safety Report 7769204-4 (Version None)
Quarter: 2011Q3

REPORT INFORMATION
  Report Type: 
  Country: None (occurrence: None)
  Receive Date: 20110922
  Receipt Date: 20110913
  Transmission Date: 20111222
  Serious: Yes (Death, Hospitalization)
  Sender: FDA-Public Use
  Company Number: CO-MPIJNJ-2011-04129

PATIENT

DRUGS (1)
  1. VELCADE [Suspect]
     Indication: MULTIPLE MYELOMA
     Dosage: 1.9 MG, UNK
     Route: 065
     Dates: start: 20110709, end: 20110907

REACTIONS (4)
  - HYPOTENSION [None]
  - DEATH [None]
  - RENAL FAILURE [None]
  - PNEUMONIA [None]
